FAERS Safety Report 6295220-8 (Version None)
Quarter: 2009Q3

REPORT INFORMATION
  Report Type: 
  Country: None (occurrence: None)
  Receive Date: 20090803
  Receipt Date: 20090729
  Transmission Date: 20100115
  Serious: Yes (Life-Threatening, Hospitalization, Disabling)
  Sender: FDA-Public Use
  Company Number: PHHO2007US08613

PATIENT
  Sex: Male
  Weight: 57 kg

DRUGS (11)
  1. RAD 666 RAD+TAB+PTR [Suspect]
     Indication: RENAL TRANSPLANT
     Dosage: 0.75 MG, BID
     Route: 048
     Dates: start: 20060202
  2. RAD 666 RAD+TAB+PTR [Suspect]
     Dosage: 0.5 MG, BID
     Route: 048
     Dates: end: 20070607
  3. NEORAL [Concomitant]
     Indication: RENAL TRANSPLANT
     Dosage: 75 MG, BID
     Route: 048
     Dates: start: 20060202, end: 20070525
  4. NEORAL [Concomitant]
     Dosage: 25/50MG BID
     Route: 048
     Dates: start: 20070526, end: 20070529
  5. NEORAL [Concomitant]
     Dosage: 25MG BID
     Route: 048
     Dates: start: 20070530, end: 20070531
  6. NEORAL [Concomitant]
     Dosage: NO TREATMENT
     Dates: start: 20070601, end: 20070602
  7. NEORAL [Concomitant]
     Dosage: 25 MG
     Dates: start: 20070603, end: 20070603
  8. NEORAL [Concomitant]
     Dosage: 25MG BID
     Route: 048
     Dates: start: 20070604
  9. PREDNISONE TAB [Concomitant]
     Indication: RENAL TRANSPLANT
     Dosage: 10 MG DAILY
     Route: 048
     Dates: start: 20070524, end: 20070606
  10. PREDNISONE TAB [Concomitant]
     Dosage: NO TREATMENT
     Route: 048
     Dates: start: 20070607, end: 20070609
  11. PREDNISONE TAB [Concomitant]
     Dosage: 60MG DAILY
     Route: 048
     Dates: start: 20070610

REACTIONS (14)
  - CARDIAC ARREST [None]
  - FALL [None]
  - FEMUR FRACTURE [None]
  - LUNG INFILTRATION [None]
  - MECHANICAL VENTILATION [None]
  - MENTAL STATUS CHANGES [None]
  - OPEN REDUCTION OF FRACTURE [None]
  - ORGANISING PNEUMONIA [None]
  - PNEUMONITIS [None]
  - PNEUMOTHORAX [None]
  - PULMONARY FIBROSIS [None]
  - RESPIRATORY ARREST [None]
  - RESPIRATORY FAILURE [None]
  - SHOCK [None]
